FAERS Safety Report 9538908 (Version 1)
Quarter: 2013Q2

REPORT INFORMATION
  Report Type: Spontaneous
  Country: US (occurrence: None)
  Receive Date: 20130517
  Receipt Date: 20130517
  Transmission Date: 20140414
  Serious: Yes (Other)
  Sender: FDA-Public Use
  Company Number: 1000043897

PATIENT
  Age: 75 Year
  Sex: Female

DRUGS (4)
  1. VIIBRYD [Suspect]
     Indication: DEPRESSION
     Dosage: 10 MG ( 10 MG, 1 IN 1 D), ORAL
     Route: 048
     Dates: start: 20130328
  2. BLOOD PRESSURE MEDICATION NOS ( BLOOD PRESSURE MEDICATION NOS) ( BLOOD PRESSURE MEDICATION NOS) [Concomitant]
  3. PRILOSEC ( OMEPRAZOLE) ( OMEPRAZOLE) [Concomitant]
  4. BABY ASPIRIN ( ACETYLSALICYLIC ACID) (ACETYLSALICYLIC ACID) [Concomitant]

REACTIONS (1)
  - Nausea [None]
